FAERS Safety Report 9439094 (Version 1)
Quarter: 2013Q3

REPORT INFORMATION
  Report Type: Report from Study
  Country: US (occurrence: US)
  Receive Date: 20130802
  Receipt Date: 20130802
  Transmission Date: 20140515
  Serious: Yes (Hospitalization, Other)
  Sender: FDA-Public Use
  Company Number: US-ABBOTT-13P-163-1125798-00

PATIENT
  Age: 55 Year
  Sex: Female
  Weight: 74.46 kg

DRUGS (3)
  1. HUMIRA [Suspect]
     Indication: PSORIASIS
     Dates: start: 201212, end: 201304
  2. HUMIRA [Suspect]
     Indication: PSORIATIC ARTHROPATHY
  3. CARBATROL [Concomitant]
     Indication: CONVULSION

REACTIONS (7)
  - Device breakage [Recovered/Resolved]
  - Fall [Recovered/Resolved]
  - Knee arthroplasty [Recovered/Resolved]
  - Psoriasis [Not Recovered/Not Resolved]
  - Arthralgia [Not Recovered/Not Resolved]
  - Post procedural infection [Recovered/Resolved]
  - Psoriatic arthropathy [Not Recovered/Not Resolved]
